FAERS Safety Report 6673161-1 (Version None)
Quarter: 2010Q2

REPORT INFORMATION
  Report Type: 
  Country: None (occurrence: None)
  Receive Date: 20100408
  Receipt Date: 20100330
  Transmission Date: 20101027
  Serious: Yes (Other)
  Sender: FDA-Public Use
  Company Number: US-JNJFOC-20100400368

PATIENT
  Sex: Female

DRUGS (5)
  1. REMICADE [Suspect]
     Indication: DRUG USE FOR UNKNOWN INDICATION
     Route: 042
  2. METHOTREXATE [Interacting]
     Indication: DRUG USE FOR UNKNOWN INDICATION
  3. CLARITIN [Interacting]
     Indication: DRUG USE FOR UNKNOWN INDICATION
  4. FLONASE [Interacting]
     Indication: DRUG USE FOR UNKNOWN INDICATION
     Route: 045
  5. MULTI-VITAMINS [Concomitant]

REACTIONS (2)
  - DRUG INTERACTION [None]
  - LOSS OF CONSCIOUSNESS [None]
